FAERS Safety Report 24364473 (Version 1)
Quarter: 2024Q3

REPORT INFORMATION
  Report Type: Spontaneous
  Country: BR (occurrence: BR)
  Receive Date: 20240926
  Receipt Date: 20240926
  Transmission Date: 20241017
  Serious: Yes (Hospitalization)
  Sender: BIOGEN
  Company Number: BR-BIOGEN-2024BI01283748

PATIENT
  Age: 40 Year
  Sex: Male
  Weight: 90 kg

DRUGS (2)
  1. DALFAMPRIDINE [Suspect]
     Active Substance: DALFAMPRIDINE
     Indication: Gait disturbance
     Route: 050
  2. OCREVUS [Concomitant]
     Active Substance: OCRELIZUMAB
     Indication: Multiple sclerosis
     Route: 050

REACTIONS (3)
  - Central nervous system lesion [Not Recovered/Not Resolved]
  - Dysstasia [Not Recovered/Not Resolved]
  - Muscular weakness [Not Recovered/Not Resolved]

NARRATIVE: CASE EVENT DATE: 20240701
